FAERS Safety Report 12983860 (Version 3)
Quarter: 2019Q1

REPORT INFORMATION
  Report Type: Report from Study
  Country: DE (occurrence: DE)
  Receive Date: 20161129
  Receipt Date: 20190131
  Transmission Date: 20190417
  Serious: Yes (Death, Hospitalization)
  Sender: FDA-Public Use
  Company Number: DE-INCYTE CORPORATION-2016IN006962

PATIENT

DRUGS (37)
  1. INCB018424 [Suspect]
     Active Substance: RUXOLITINIB
     Dosage: 20 MG, BID
     Route: 048
     Dates: start: 20160204, end: 20161015
  2. NOVAMINSULFON [Concomitant]
     Active Substance: METAMIZOLE
     Indication: LARYNGEAL PAIN
     Dosage: UNK UNK, PRN
     Route: 065
     Dates: start: 20140908
  3. DICLOFENAC [Concomitant]
     Active Substance: DICLOFENAC
     Indication: OROPHARYNGEAL PAIN
     Dosage: UNK UNK, PRN
     Route: 065
     Dates: start: 20050204
  4. LITALIR [Concomitant]
     Active Substance: HYDROXYUREA
     Indication: MYELOFIBROSIS
     Dosage: 1000 MG, QD
     Route: 065
     Dates: start: 20141213, end: 20141218
  5. LITALIR [Concomitant]
     Active Substance: HYDROXYUREA
     Dosage: 500 MG, QD
     Route: 065
     Dates: start: 20150521, end: 20151215
  6. LITALIR [Concomitant]
     Active Substance: HYDROXYUREA
     Dosage: 1000 MG, QD
     Route: 065
     Dates: start: 20160830
  7. CIPROFLOXACIN. [Concomitant]
     Active Substance: CIPROFLOXACIN
     Indication: URINARY TRACT INFECTION
     Dosage: 500 OT, QD
     Route: 065
     Dates: start: 20160804, end: 20160813
  8. LEVOTHYROXINE. [Concomitant]
     Active Substance: LEVOTHYROXINE
     Indication: HYPOTHYROIDISM
     Dosage: 75 OT, QD
     Route: 065
     Dates: end: 20150811
  9. INCB018424 [Suspect]
     Active Substance: RUXOLITINIB
     Indication: PRIMARY MYELOFIBROSIS
     Dosage: 5 MG, BID
     Route: 048
     Dates: start: 20140528
  10. LEVOFLOXACINE [Concomitant]
     Active Substance: LEVOFLOXACIN
     Indication: VOCAL CORD INFLAMMATION
     Dosage: 250 OT, QD
     Route: 065
     Dates: start: 20141222, end: 20141229
  11. CEFAZOLIN [Concomitant]
     Active Substance: CEFAZOLIN
     Indication: PRODUCT USED FOR UNKNOWN INDICATION
     Dosage: 6 G, QD
     Route: 065
     Dates: start: 20150217, end: 20150306
  12. OXYCODON HCL ABZ [Concomitant]
     Indication: PAIN
     Dosage: 20 MG, QD
     Route: 065
     Dates: start: 20150506
  13. ESOMEPRAZOLE. [Concomitant]
     Active Substance: ESOMEPRAZOLE MAGNESIUM
     Indication: GASTROOESOPHAGEAL REFLUX DISEASE
     Dosage: 20 MG, QD
     Route: 065
     Dates: start: 20150724
  14. EXJADE [Concomitant]
     Active Substance: DEFERASIROX
     Indication: IRON OVERLOAD
     Dosage: 500 MG, QD
     Route: 065
     Dates: start: 20151112, end: 20160523
  15. EXJADE [Concomitant]
     Active Substance: DEFERASIROX
     Dosage: 1000 MG, QD
     Route: 065
     Dates: start: 20160830
  16. LITALIR [Concomitant]
     Active Substance: HYDROXYUREA
     Dosage: 500 MG, QD
     Route: 065
     Dates: start: 20160426, end: 20160808
  17. AMINEURIN [Concomitant]
     Active Substance: AMITRIPTYLINE HYDROCHLORIDE
     Indication: DEPRESSION
     Dosage: 10 MG, QD
     Route: 065
     Dates: start: 20150624
  18. INCB018424 [Suspect]
     Active Substance: RUXOLITINIB
     Dosage: 20 MG, BID
     Route: 048
     Dates: start: 20150725
  19. LITALIR [Concomitant]
     Active Substance: HYDROXYUREA
     Dosage: 1500 MG, QD
     Route: 065
     Dates: start: 20150120, end: 20150515
  20. LITALIR [Concomitant]
     Active Substance: HYDROXYUREA
     Dosage: 1000 MG, QD
     Route: 065
     Dates: start: 20151216, end: 20160104
  21. FENTANYL. [Concomitant]
     Active Substance: FENTANYL
     Indication: PAIN
     Dosage: 50 UG/HR, UNK
     Route: 065
     Dates: start: 20150204
  22. INCB018424 [Suspect]
     Active Substance: RUXOLITINIB
     Dosage: 15 MG, BID
     Route: 048
     Dates: start: 20140613, end: 20140813
  23. INCB018424 [Suspect]
     Active Substance: RUXOLITINIB
     Dosage: 15 MG, BID
     Route: 048
     Dates: start: 20141030, end: 20141111
  24. INCB018424 [Suspect]
     Active Substance: RUXOLITINIB
     Dosage: 15 MG, BID
     Route: 048
     Dates: start: 20141112, end: 20141208
  25. INCB018424 [Suspect]
     Active Substance: RUXOLITINIB
     Dosage: 15 MG, BID
     Route: 048
     Dates: start: 20151029, end: 20160203
  26. IBUPROFEN. [Concomitant]
     Active Substance: IBUPROFEN
     Indication: INTERVERTEBRAL DISC PROTRUSION
     Dosage: 600 MG, QD
     Route: 065
     Dates: start: 20130902
  27. FORMOTEROL [Concomitant]
     Active Substance: FORMOTEROL
     Indication: BRONCHITIS
     Dosage: 12.5 UG, BID
     Route: 065
     Dates: start: 20140513
  28. LITALIR [Concomitant]
     Active Substance: HYDROXYUREA
     Dosage: 1000 MG, QD
     Route: 065
     Dates: start: 20141220, end: 20150119
  29. LITALIR [Concomitant]
     Active Substance: HYDROXYUREA
     Dosage: 500 MG, QD
     Route: 065
     Dates: start: 20160105, end: 20160323
  30. EXJADE [Concomitant]
     Active Substance: DEFERASIROX
     Dosage: 500 MG, QD
     Route: 065
     Dates: start: 20160804, end: 20160829
  31. DOXYCYCLINE. [Concomitant]
     Active Substance: DOXYCYCLINE
     Indication: PHARYNGITIS
     Dosage: UNK
     Route: 065
     Dates: start: 20140613
  32. LITALIR [Concomitant]
     Active Substance: HYDROXYUREA
     Dosage: 500 MG, QD
     Route: 065
     Dates: start: 20151216, end: 20160104
  33. INCB018424 [Suspect]
     Active Substance: RUXOLITINIB
     Dosage: 5 MG, BID
     Route: 048
     Dates: start: 20140814, end: 20141029
  34. INCB018424 [Suspect]
     Active Substance: RUXOLITINIB
     Dosage: 15 MG, BID
     Route: 048
     Dates: start: 20141209, end: 20150724
  35. CLONT [Concomitant]
     Indication: PRODUCT USED FOR UNKNOWN INDICATION
     Dosage: 6 G, QD
     Route: 065
     Dates: start: 20150217, end: 20150306
  36. LEVOTHYROXINE. [Concomitant]
     Active Substance: LEVOTHYROXINE
     Dosage: 100 OT, QD
     Route: 065
     Dates: start: 20150812
  37. EXJADE [Concomitant]
     Active Substance: DEFERASIROX
     Dosage: 1000 MG, QD
     Route: 065
     Dates: start: 20160524, end: 20160803

REACTIONS (6)
  - Klebsiella infection [Fatal]
  - Respiratory disorder [Fatal]
  - Renal impairment [Fatal]
  - Urosepsis [Fatal]
  - Multiple organ dysfunction syndrome [Fatal]
  - Circulatory collapse [Not Recovered/Not Resolved]

NARRATIVE: CASE EVENT DATE: 20161015
